FAERS Safety Report 19056346 (Version 1)
Quarter: 2021Q1

REPORT INFORMATION
  Report Type: Spontaneous
  Country: US (occurrence: US)
  Receive Date: 20210324
  Receipt Date: 20210324
  Transmission Date: 20210420
  Serious: No
  Sender: FDA-Public Use
  Company Number: US-PFIZER INC-2021298776

PATIENT
  Age: 61 Year
  Sex: Male
  Weight: 113.39 kg

DRUGS (1)
  1. XELJANZ [Suspect]
     Active Substance: TOFACITINIB CITRATE
     Indication: COLITIS ULCERATIVE
     Dosage: 10 MG, 2X/DAY (2 TABS)
     Route: 048
     Dates: start: 202103

REACTIONS (3)
  - Loss of personal independence in daily activities [Unknown]
  - Diarrhoea [Unknown]
  - Condition aggravated [Unknown]
